FAERS Safety Report 20376188 (Version 1)
Quarter: 2022Q1

REPORT INFORMATION
  Report Type: Spontaneous
  Country: US (occurrence: None)
  Receive Date: 20220125
  Receipt Date: 20220125
  Transmission Date: 20220424
  Serious: Yes (Hospitalization, Other)
  Sender: FDA-Public Use
  Company Number: 2022A031154

PATIENT
  Sex: Female
  Weight: 62.6 kg

DRUGS (2)
  1. SYMBICORT [Suspect]
     Active Substance: BUDESONIDE\FORMOTEROL FUMARATE DIHYDRATE
     Indication: Chronic obstructive pulmonary disease
     Route: 055
     Dates: start: 20200806, end: 20210226
  2. BUDESONIDE\FORMOTEROL\GLYCOPYRRONIUM [Concomitant]
     Active Substance: BUDESONIDE\FORMOTEROL\GLYCOPYRRONIUM
     Indication: Chronic obstructive pulmonary disease
     Dosage: 160/9/4.8MCG
     Route: 055
     Dates: start: 20210226, end: 20220112

REACTIONS (9)
  - Breast cancer [Unknown]
  - Dyspnoea [Unknown]
  - Sinusitis [Unknown]
  - Lung disorder [Unknown]
  - Inflammation [Unknown]
  - Secretion discharge [Unknown]
  - Eye disorder [Unknown]
  - Heart rate increased [Unknown]
  - Intentional device misuse [Unknown]
